FAERS Safety Report 9501959 (Version 1)
Quarter: 2013Q3

REPORT INFORMATION
  Report Type: Spontaneous
  Country: RU (occurrence: RU)
  Receive Date: 20130905
  Receipt Date: 20130905
  Transmission Date: 20140515
  Serious: Yes (Hospitalization)
  Sender: FDA-Public Use
  Company Number: RU-TEVA-429849ISR

PATIENT
  Age: 54 Year
  Sex: Female

DRUGS (1)
  1. EQUORAL [Suspect]

REACTIONS (4)
  - Graft versus host disease [Unknown]
  - Asthenia [Unknown]
  - Appetite disorder [Unknown]
  - Drug ineffective [Unknown]
